FAERS Safety Report 8298174-8 (Version None)
Quarter: 2012Q2

REPORT INFORMATION
  Report Type: 
  Country: None (occurrence: None)
  Receive Date: 20120419
  Receipt Date: 20120321
  Transmission Date: 20120825
  Serious: Yes (Life-Threatening, Hospitalization, Other)
  Sender: FDA-Public Use
  Company Number: US-BRISTOL-MYERS SQUIBB COMPANY-16468274

PATIENT
  Age: 70 Year
  Sex: Male
  Weight: 83 kg

DRUGS (15)
  1. YERVOY [Suspect]
     Dosage: NO OF DOSE:1 YERVOY INFUSION
     Dates: start: 20111201
  2. ZOCOR [Concomitant]
  3. OSTEO BI-FLEX [Concomitant]
     Indication: ARTHROPATHY
  4. MULTI-VITAMIN [Concomitant]
  5. PREDNISONE TAB [Concomitant]
  6. SPIRIVA [Concomitant]
  7. VITAMIN D [Concomitant]
  8. FOSINOPRIL SODIUM [Concomitant]
  9. FLOMAX [Concomitant]
  10. METOPROLOL TARTRATE [Concomitant]
  11. PRILOSEC [Concomitant]
  12. NITROGLYCERIN [Concomitant]
     Dosage: PILL
  13. LASIX [Concomitant]
  14. ALBUTEROL [Concomitant]
  15. SYMBICORT [Concomitant]

REACTIONS (4)
  - MEMORY IMPAIRMENT [None]
  - HAEMATOCHEZIA [None]
  - MYOCARDIAL INFARCTION [None]
  - PLATELET COUNT DECREASED [None]
